FAERS Safety Report 5099811-1 (Version None)
Quarter: 2006Q3

REPORT INFORMATION
  Report Type: 
  Country: None (occurrence: None)
  Receive Date: 20060908
  Receipt Date: 20060815
  Transmission Date: 20061208
  Serious: Yes (Death, Hospitalization)
  Sender: FDA-Public Use
  Company Number: GBWYE708215AUG06

PATIENT
  Sex: Female

DRUGS (2)
  1. ENBREL [Suspect]
     Indication: PSORIATIC ARTHROPATHY
     Route: 058
     Dates: start: 20030919, end: 20060310
  2. CORTICOSTEROID NOS [Concomitant]
     Dosage: UNKNOWN

REACTIONS (2)
  - CEREBRAL HAEMORRHAGE [None]
  - FALL [None]
